FAERS Safety Report 25815290 (Version 1)
Quarter: 2025Q3

REPORT INFORMATION
  Report Type: Spontaneous
  Country: GB (occurrence: GB)
  Receive Date: 20250918
  Receipt Date: 20250918
  Transmission Date: 20251021
  Serious: Yes (Other)
  Sender: TEVA
  Company Number: GB-MHRA-EMIS-159651-fbb8bc2e-72a5-477a-bdd1-d36910d02cb0

PATIENT
  Age: 23 Year
  Sex: Female
  Weight: 78 kg

DRUGS (5)
  1. CLOTRIMAZOLE [Suspect]
     Active Substance: CLOTRIMAZOLE
     Dosage: DAILY DOSAGE: 60G; APPLY
     Route: 065
     Dates: start: 20250915
  2. CLOTRIMAZOLE [Suspect]
     Active Substance: CLOTRIMAZOLE
     Dosage: APPLY DAILY DOSAGE: 40G
     Route: 065
     Dates: start: 20250915
  3. TERBINAFINE [Concomitant]
     Active Substance: TERBINAFINE
     Indication: Product used for unknown indication
  4. LORATADINE [Concomitant]
     Active Substance: LORATADINE
     Indication: Hypersensitivity
     Dosage: DAILY DOSAGE: 1 DOSAGE FORM
  5. BENZYDAMINE [Concomitant]
     Active Substance: BENZYDAMINE
     Indication: Product used for unknown indication
     Dates: start: 20250828

REACTIONS (1)
  - Lip swelling [Unknown]

NARRATIVE: CASE EVENT DATE: 20250915
